FAERS Safety Report 6712185-2 (Version None)
Quarter: 2010Q2

REPORT INFORMATION
  Report Type: 
  Country: None (occurrence: None)
  Receive Date: 20100505
  Receipt Date: 20100426
  Transmission Date: 20101027
  Serious: Yes (Hospitalization)
  Sender: FDA-Public Use
  Company Number: PHHY2010JP14709

PATIENT
  Sex: Female

DRUGS (7)
  1. NEORAL [Suspect]
     Indication: NEPHROTIC SYNDROME
     Dosage: 50 MG, BID
     Route: 048
     Dates: start: 20091210, end: 20100222
  2. PREDNISOLONE [Concomitant]
     Indication: NEPHROTIC SYNDROME
     Dosage: 10 MG DAILY
     Route: 048
     Dates: start: 20080620
  3. PREDNISOLONE [Concomitant]
     Dosage: 20 MG DAILY
     Route: 048
     Dates: start: 20100201
  4. IMMUNE GLOBULIN INTRAVENOUS (HUMAN) [Concomitant]
     Dosage: 0.5 G/KG/DAY
     Route: 042
     Dates: start: 20100224
  5. BREDININ [Concomitant]
     Indication: NEPHROTIC SYNDROME
     Dosage: 150 MG
     Route: 048
     Dates: start: 20081223, end: 20091210
  6. SAIREI-TO [Concomitant]
     Indication: NEPHROTIC SYNDROME
     Dosage: 3 G, UNK
     Route: 048
     Dates: start: 20091210
  7. SELBEX [Concomitant]
     Indication: GASTRITIS
     Dosage: 15 MG, UNK
     Route: 048
     Dates: start: 20080620

REACTIONS (3)
  - AREFLEXIA [None]
  - GUILLAIN-BARRE SYNDROME [None]
  - MUSCULAR WEAKNESS [None]
